FAERS Safety Report 24725430 (Version 2)
Quarter: 2025Q1

REPORT INFORMATION
  Report Type: Spontaneous
  Country: JP (occurrence: JP)
  Receive Date: 20241212
  Receipt Date: 20250107
  Transmission Date: 20250409
  Serious: Yes (Hospitalization, Other)
  Sender: Phathom Pharmaceuticals
  Company Number: JP-PHATHOM PHARMACEUTICALS INC.-2024PHT01415

PATIENT
  Age: 59 Year
  Sex: Male

DRUGS (26)
  1. VONOPRAZAN FUMARATE [Suspect]
     Active Substance: VONOPRAZAN FUMARATE
     Indication: Gastrooesophageal reflux disease
     Dosage: 10 MG, QD
     Route: 048
     Dates: start: 202411, end: 20241125
  2. VONOPRAZAN FUMARATE [Suspect]
     Active Substance: VONOPRAZAN FUMARATE
     Route: 048
     Dates: start: 20241126
  3. VONOPRAZAN FUMARATE [Suspect]
     Active Substance: VONOPRAZAN FUMARATE
     Route: 048
  4. AMOXICILLIN\CLARITHROMYCIN\VONOPRAZAN FUMURATE [Concomitant]
     Active Substance: AMOXICILLIN\CLARITHROMYCIN\VONOPRAZAN FUMURATE
     Dates: start: 20241107
  5. INSULIN LISPRO [Concomitant]
     Active Substance: INSULIN LISPRO
  6. INSULIN GLARGINE [Concomitant]
     Active Substance: INSULIN GLARGINE
  7. VIBEGRON [Concomitant]
     Active Substance: VIBEGRON
  8. VITAMIN B6 [Concomitant]
     Active Substance: PYRIDOXINE HYDROCHLORIDE
  9. BIOTIN [Concomitant]
     Active Substance: BIOTIN
  10. CHOCOLA A [Concomitant]
  11. PANTETHINE [Concomitant]
     Active Substance: PANTETHINE
  12. ADONA [Concomitant]
  13. TRANEXAMIC ACID [Concomitant]
     Active Substance: TRANEXAMIC ACID
  14. BETAMETHASONE [Concomitant]
     Active Substance: BETAMETHASONE
  15. OLOPATADINE HYDROCHLORIDE [Concomitant]
     Active Substance: OLOPATADINE HYDROCHLORIDE
  16. AZELASTINE HYDROCHLORIDE [Concomitant]
     Active Substance: AZELASTINE HYDROCHLORIDE
  17. MOMETASONE FUROATE [Concomitant]
     Active Substance: MOMETASONE FUROATE
  18. GLYDIL [Concomitant]
  19. TACALCITOL [Concomitant]
     Active Substance: TACALCITOL
  20. PAXIL [Concomitant]
     Active Substance: PAROXETINE HYDROCHLORIDE
  21. MIRTAZAPINE [Concomitant]
     Active Substance: MIRTAZAPINE
  22. CHLORPROMAZINE [Concomitant]
     Active Substance: CHLORPROMAZINE
  23. PIPAMPERONE [Concomitant]
     Active Substance: PIPAMPERONE
  24. RIVOTRIL [Concomitant]
     Active Substance: CLONAZEPAM
  25. FLUNITRAZEPAM [Concomitant]
     Active Substance: FLUNITRAZEPAM
  26. BROMAZEPAM [Concomitant]
     Active Substance: BROMAZEPAM

REACTIONS (1)
  - Pancreatitis acute [Recovered/Resolved]

NARRATIVE: CASE EVENT DATE: 20241126
